FAERS Safety Report 20627023 (Version 1)
Quarter: 2022Q1

REPORT INFORMATION
  Report Type: Spontaneous
  Country: US (occurrence: US)
  Receive Date: 20220323
  Receipt Date: 20220323
  Transmission Date: 20220423
  Serious: No
  Sender: FDA-Public Use
  Company Number: US-PFIZER INC-202101587265

PATIENT
  Age: 27 Year
  Sex: Male

DRUGS (1)
  1. BICILLIN L-A [Suspect]
     Active Substance: PENICILLIN G BENZATHINE
     Indication: Syphilis
     Dosage: UNK, CYCLIC (2.4 MILLION UNITS PER 4 ML, INJECT INTRAMUSCULARLY ONCE A WEEK TIMES THREE WEEKS)
     Route: 030

REACTIONS (1)
  - Needle issue [Unknown]
